FAERS Safety Report 23755281 (Version 1)
Quarter: 2024Q2

REPORT INFORMATION
  Report Type: Report from Study
  Country: US (occurrence: US)
  Receive Date: 20240418
  Receipt Date: 20240418
  Transmission Date: 20240716
  Serious: Yes (Other)
  Sender: FDA-Public Use
  Company Number: US-002147023-NVSC2024US081775

PATIENT
  Age: 40 Year
  Sex: Male

DRUGS (1)
  1. GLEEVEC [Suspect]
     Active Substance: IMATINIB MESYLATE
     Indication: Chronic myeloid leukaemia
     Dosage: UNK
     Route: 065

REACTIONS (22)
  - Feeling abnormal [Unknown]
  - Depressed level of consciousness [Unknown]
  - Sepsis [Unknown]
  - Chest pain [Unknown]
  - Panic attack [Unknown]
  - Haemorrhage [Unknown]
  - Heart rate irregular [Unknown]
  - Fluid retention [Unknown]
  - Skin reaction [Unknown]
  - Oral pain [Unknown]
  - Pain [Unknown]
  - Oropharyngeal pain [Unknown]
  - Dyspnoea [Unknown]
  - Diarrhoea [Unknown]
  - Headache [Unknown]
  - Fatigue [Unknown]
  - Pyrexia [Unknown]
  - Rash [Unknown]
  - Nausea [Unknown]
  - Vomiting [Unknown]
  - Myalgia [Unknown]
  - Contusion [Unknown]
